APPROVED DRUG PRODUCT: FUROSEMIDE
Active Ingredient: FUROSEMIDE
Strength: 40MG
Dosage Form/Route: TABLET;ORAL
Application: N018750 | Product #002
Applicant: EPIC PHARMA LLC
Approved: Jul 30, 1984 | RLD: No | RS: No | Type: DISCN